FAERS Safety Report 15073758 (Version 1)
Quarter: 2018Q2

REPORT INFORMATION
  Report Type: Spontaneous
  Country: US (occurrence: US)
  Receive Date: 20180606
  Receipt Date: 20180606
  Transmission Date: 20180711
  Serious: Yes (Hospitalization)
  Sender: FDA-Public Use
  Company Number: None

PATIENT
  Age: 65 Year
  Sex: Male
  Weight: 92.1 kg

DRUGS (2)
  1. IPILIMUMAB [Suspect]
     Active Substance: IPILIMUMAB
  2. NIVOLUMAB [Suspect]
     Active Substance: NIVOLUMAB

REACTIONS (8)
  - Vomiting [None]
  - Vasogenic cerebral oedema [None]
  - Hypoaesthesia [None]
  - Dizziness [None]
  - Nausea [None]
  - Neck pain [None]
  - Diarrhoea [None]
  - Headache [None]

NARRATIVE: CASE EVENT DATE: 20180606
